FAERS Safety Report 4282039-2 (Version None)
Quarter: 2004Q1

REPORT INFORMATION
  Report Type: 
  Country: None (occurrence: None)
  Receive Date: 20040128
  Receipt Date: 20040115
  Transmission Date: 20041129
  Serious: Yes (Hospitalization, Other)
  Sender: FDA-Public Use
  Company Number: HQWYE389815JAN04

PATIENT
  Age: 8 Month
  Sex: Female

DRUGS (1)
  1. CHILDREN'S ADVIL [Suspect]
     Indication: PYREXIA
     Dosage: ^1 DOSE PER WEIGHT ^; ORAL
     Route: 048
     Dates: start: 20040102, end: 20040102

REACTIONS (10)
  - CONDITION AGGRAVATED [None]
  - HEPATOMEGALY [None]
  - INFLAMMATION [None]
  - LIVEDO RETICULARIS [None]
  - LOSS OF CONSCIOUSNESS [None]
  - PERIPHERAL COLDNESS [None]
  - RASH [None]
  - RHINORRHOEA [None]
  - TACHYCARDIA [None]
  - VARICELLA [None]
